FAERS Safety Report 15263795 (Version 1)
Quarter: 2018Q3

REPORT INFORMATION
  Report Type: Report from Study
  Country: US (occurrence: US)
  Receive Date: 20180810
  Receipt Date: 20180810
  Transmission Date: 20181010
  Serious: Yes (Hospitalization)
  Sender: FDA-Public Use
  Company Number: US-ROCHE-2167197

PATIENT
  Sex: Male
  Weight: 26.7 kg

DRUGS (8)
  1. BUDESONIDE. [Concomitant]
     Active Substance: BUDESONIDE
     Dosage: PRN
     Route: 065
  2. NUTROPIN AQ [Suspect]
     Active Substance: SOMATROPIN
     Dosage: 6 INJ/WEEK
     Route: 058
     Dates: start: 20171103
  3. NUTROPIN AQ [Suspect]
     Active Substance: SOMATROPIN
     Dosage: 6 INJ/WEEK
     Route: 058
     Dates: start: 20180216
  4. NASOCORT [Concomitant]
     Active Substance: BUDESONIDE
  5. ALLEGRA [Concomitant]
     Active Substance: FEXOFENADINE HYDROCHLORIDE
     Dosage: PRN
     Route: 065
  6. ALBUTEROL. [Concomitant]
     Active Substance: ALBUTEROL
     Dosage: PRN
     Route: 065
  7. AMOXICILLIN. [Concomitant]
     Active Substance: AMOXICILLIN
     Indication: PROPHYLAXIS
     Route: 065
  8. NUTROPIN AQ [Suspect]
     Active Substance: SOMATROPIN
     Indication: HYPOPITUITARISM
     Dosage: 6 INJ/WEEK
     Route: 058
     Dates: start: 20170728

REACTIONS (2)
  - Decreased appetite [Unknown]
  - Pyrexia [Unknown]
